FAERS Safety Report 5884233-3 (Version None)
Quarter: 2008Q3

REPORT INFORMATION
  Report Type: 
  Country: None (occurrence: None)
  Receive Date: 20080915
  Receipt Date: 20080904
  Transmission Date: 20090109
  Serious: Yes (Other)
  Sender: FDA-Public Use
  Company Number: GB-ASTRAZENECA-2008GB01665

PATIENT
  Age: 61 Year
  Sex: Female
  Weight: 82.6 kg

DRUGS (4)
  1. FELODIPINE [Suspect]
     Indication: HYPERTENSION
     Dosage: 10 MG
     Route: 048
     Dates: start: 20080212, end: 20080401
  2. BISOPROLOL FUMARATE [Concomitant]
     Indication: HYPERTENSION
     Dosage: 5 MG
     Route: 048
     Dates: start: 20070101
  3. ESTROGENIC SUBSTANCE [Concomitant]
     Indication: HORMONE REPLACEMENT THERAPY
     Dosage: 240 MG
     Route: 061
     Dates: start: 20010101
  4. PROVERA [Concomitant]
     Indication: HORMONE REPLACEMENT THERAPY
     Dosage: 5 MG
     Route: 048
     Dates: start: 20010101

REACTIONS (3)
  - ALCOHOL INTERACTION [None]
  - CAPILLARY DISORDER [None]
  - SUNBURN [None]
